FAERS Safety Report 7266523-5 (Version None)
Quarter: 2011Q1

REPORT INFORMATION
  Report Type: 
  Country: None (occurrence: None)
  Receive Date: 20110131
  Receipt Date: 20110125
  Transmission Date: 20110831
  Serious: Yes (Hospitalization, Other)
  Sender: FDA-Public Use
  Company Number: US-PFIZER INC-2010146053

PATIENT
  Sex: Female

DRUGS (8)
  1. PROZAC [Concomitant]
     Indication: DEPRESSION
     Dosage: UNK
     Dates: start: 19990101, end: 20080101
  2. XANAX [Concomitant]
     Indication: ANXIETY
     Dosage: UNK
     Dates: start: 20030101
  3. LEVAQUIN [Concomitant]
     Indication: INFECTION
     Dosage: UNK
     Dates: start: 20030101, end: 20100101
  4. LAMICTAL [Concomitant]
     Indication: BIPOLAR DISORDER
     Dosage: UNK
     Dates: start: 20030101, end: 20090101
  5. DOXYCYCLINE [Concomitant]
     Indication: INFECTION
     Dosage: UNK
     Dates: start: 20030101, end: 20100101
  6. CHANTIX [Suspect]
     Indication: SMOKING CESSATION THERAPY
     Dosage: 0.5MG/1MG
     Dates: start: 20070701, end: 20070801
  7. WELLBUTRIN [Concomitant]
     Indication: DEPRESSION
     Dosage: UNK
     Dates: start: 19990101, end: 20080101
  8. GEODON [Concomitant]
     Indication: BIPOLAR DISORDER
     Dosage: UNK
     Dates: start: 20030101, end: 20090101

REACTIONS (6)
  - AGITATION [None]
  - ANXIETY [None]
  - INTENTIONAL OVERDOSE [None]
  - DEPRESSION [None]
  - INSOMNIA [None]
  - SUICIDE ATTEMPT [None]
